FAERS Safety Report 5810303-1 (Version None)
Quarter: 2008Q3

REPORT INFORMATION
  Report Type: 
  Country: None (occurrence: None)
  Receive Date: 20080715
  Receipt Date: 20080425
  Transmission Date: 20090109
  Serious: No
  Sender: FDA-Public Use
  Company Number: A0715541A

PATIENT
  Age: 46 Year
  Sex: Female

DRUGS (8)
  1. IMITREX [Suspect]
     Indication: MIGRAINE
     Dosage: 100MG AS REQUIRED
     Route: 048
     Dates: start: 20040601
  2. VALIUM [Concomitant]
  3. PROTOPIC [Concomitant]
  4. SYNALAR CREAM [Concomitant]
  5. KETOCONAZOLE SHAMPOO [Concomitant]
  6. TOPAMAX [Concomitant]
  7. ZITHROMAX [Concomitant]
  8. ZETIA [Concomitant]

REACTIONS (4)
  - HYPERSENSITIVITY [None]
  - PHARMACEUTICAL PRODUCT COMPLAINT [None]
  - RASH GENERALISED [None]
  - SWELLING [None]
